FAERS Safety Report 5765689-3 (Version None)
Quarter: 2008Q2

REPORT INFORMATION
  Report Type: 
  Country: None (occurrence: None)
  Receive Date: 20080609
  Receipt Date: 20080609
  Transmission Date: 20081010
  Serious: Yes (Other)
  Sender: FDA-Public Use
  Company Number: None

PATIENT
  Age: 42 Year
  Sex: Female
  Weight: 79.5 kg

DRUGS (2)
  1. RISPERDAL [Suspect]
     Dosage: STOPPING RISPERDAL EVERY 14DAY IM
     Route: 030
     Dates: start: 19910520, end: 19960520
  2. RISPERDAL [Suspect]
     Dosage: GO FOR MARIHUANNA ONLY MONTHLY INTRAPLEURAL
     Route: 034

REACTIONS (4)
  - DYSPNOEA [None]
  - FEELING HOT [None]
  - ILL-DEFINED DISORDER [None]
  - WEIGHT ABNORMAL [None]
